FAERS Safety Report 8836240 (Version 3)
Quarter: 2012Q4

REPORT INFORMATION
  Report Type: 
  Country: JP (occurrence: JP)
  Receive Date: 20121011
  Receipt Date: 20121106
  Transmission Date: 20130627
  Serious: Yes (Hospitalization)
  Sender: FDA-Public Use
  Company Number: JP-B.I. PHARMACEUTICALS,INC./RIDGEFIELD-2012-EU-05120GD

PATIENT
  Age: 55 Year
  Sex: Male
  Weight: 60 kg

DRUGS (10)
  1. PRADAXA [Suspect]
     Indication: THROMBOSIS PROPHYLAXIS
     Dosage: 300 mg
     Route: 048
     Dates: start: 20111124, end: 20111219
  2. MICARDIS [Concomitant]
     Indication: HYPERTENSION
     Dosage: 40 mg
     Route: 048
     Dates: start: 20111118
  3. AMLODIN OD [Concomitant]
     Indication: HYPERTENSION
     Dosage: 5 mg
     Route: 048
     Dates: start: 20111121
  4. STAYBLA [Concomitant]
     Indication: POLLAKIURIA
     Dosage: 0.2 mg
     Route: 048
     Dates: start: 20111118, end: 20111208
  5. LANTUS [Concomitant]
     Indication: DIABETES MELLITUS
     Dosage: 6DF
     Route: 048
     Dates: start: 20111118
  6. FAMOTIDINE D [Concomitant]
     Indication: HAEMORRHAGE PROPHYLAXIS
     Dosage: 20 mg
     Route: 048
     Dates: start: 20111126
  7. LOXOMARIN [Concomitant]
     Indication: MUSCULOSKELETAL PAIN
     Dosage: 180 mg
     Route: 048
     Dates: start: 20111202, end: 20111209
  8. EBRANTIL [Concomitant]
     Indication: POLLAKIURIA
     Dosage: 30 mg
     Route: 048
     Dates: start: 20111208
  9. PREDNISOLONE [Concomitant]
     Indication: CERVICOBRACHIAL SYNDROME
     Dosage: 30 mg
     Route: 048
     Dates: start: 20111209, end: 20111220
  10. JANUVIA [Concomitant]
     Indication: DIABETES MELLITUS
     Dosage: 50 mg
     Route: 048
     Dates: start: 20111216

REACTIONS (2)
  - Cerebral infarction [Recovered/Resolved with Sequelae]
  - Drug effect incomplete [Unknown]
